FAERS Safety Report 10794143 (Version 4)
Quarter: 2015Q2

REPORT INFORMATION
  Report Type: Spontaneous
  Country: US (occurrence: US)
  Receive Date: 20150213
  Receipt Date: 20150507
  Transmission Date: 20150821
  Serious: Yes (Death, Life-Threatening)
  Sender: FDA-Public Use
  Company Number: US-PFIZER INC-2015054767

PATIENT
  Age: 64 Year
  Sex: Male

DRUGS (3)
  1. COUMADIN [Concomitant]
     Active Substance: WARFARIN SODIUM
     Indication: PORTAL VEIN THROMBOSIS
     Dosage: 3 MG, 1X/DAY
     Dates: start: 20121224, end: 20141204
  2. INLYTA [Suspect]
     Active Substance: AXITINIB
     Indication: RENAL CELL CARCINOMA STAGE IV
     Dosage: 5 MG, DAILY
     Route: 048
     Dates: start: 20120913
  3. INLYTA [Suspect]
     Active Substance: AXITINIB
     Dosage: 10 MG, DAILY
     Route: 048
     Dates: start: 201406, end: 20140901

REACTIONS (4)
  - Disease progression [Fatal]
  - Fatigue [Unknown]
  - Renal cell carcinoma stage IV [Fatal]
  - Rash [Recovered/Resolved]

NARRATIVE: CASE EVENT DATE: 201404
